FAERS Safety Report 10731864 (Version 1)
Quarter: 2015Q1

REPORT INFORMATION
  Report Type: Spontaneous
  Country: JP (occurrence: JP)
  Receive Date: 20150123
  Receipt Date: 20150123
  Transmission Date: 20150721
  Serious: Yes (Other)
  Sender: FDA-Public Use
  Company Number: JP-CIPLA LTD.-2015JP00428

PATIENT

DRUGS (5)
  1. PACLITAXEL. [Suspect]
     Active Substance: PACLITAXEL
     Indication: UTERINE CANCER
     Dosage: 175 MG/M2 ON DAY 1 OVER 3 HOURS, EVERY 21 DAYS
     Route: 042
  2. CARBOPLATIN. [Suspect]
     Active Substance: CARBOPLATIN
     Indication: UTERINE CANCER
     Dosage: AUC 6 ML/MIN ON DAY 1 EVERY 21 DAYS
     Route: 042
  3. RANITIDINE [Suspect]
     Active Substance: RANITIDINE\RANITIDINE HYDROCHLORIDE
     Indication: UTERINE CANCER
     Dosage: 50 MG, UNK
     Route: 042
  4. DEXAMETHASONE. [Suspect]
     Active Substance: DEXAMETHASONE
     Indication: UTERINE CANCER
     Dosage: 20 MG, UNK
     Route: 042
  5. DIPHENHYDRAMINE [Suspect]
     Active Substance: DIPHENHYDRAMINE
     Indication: UTERINE CANCER
     Dosage: 50 MG, UNK
     Route: 048

REACTIONS (1)
  - Neuropathy peripheral [Unknown]
